FAERS Safety Report 16866968 (Version 1)
Quarter: 2019Q4

REPORT INFORMATION
  Report Type: Spontaneous
  Country: US (occurrence: US)
  Receive Date: 20190928
  Receipt Date: 20190928
  Transmission Date: 20200122
  Serious: Yes (Hospitalization, Disabling)
  Sender: FDA-Public Use
  Company Number: None

PATIENT
  Age: 61 Year
  Sex: Female
  Weight: 54.45 kg

DRUGS (1)
  1. AIMOVIG [Suspect]
     Active Substance: ERENUMAB-AOOE
     Indication: MIGRAINE
     Dosage: ?          OTHER FREQUENCY:ONCE A MONTH SHOT;OTHER ROUTE:INJECTED INTO MY LEG?
     Dates: start: 20190124, end: 20190924

REACTIONS (5)
  - Influenza like illness [None]
  - Rectal haemorrhage [None]
  - Choking [None]
  - Deafness [None]
  - Withdrawal syndrome [None]

NARRATIVE: CASE EVENT DATE: 20190917
